FAERS Safety Report 20795415 (Version 2)
Quarter: 2022Q2

REPORT INFORMATION
  Report Type: Spontaneous
  Country: GB (occurrence: GB)
  Receive Date: 20220506
  Receipt Date: 20220509
  Transmission Date: 20220721
  Serious: Yes (Other)
  Sender: FDA-Public Use
  Company Number: GB-MHRA-MED-202204271919068520-PBEMD

PATIENT
  Sex: Female

DRUGS (1)
  1. METHOTREXATE SODIUM [Suspect]
     Active Substance: METHOTREXATE SODIUM
     Indication: Arthritis
     Dosage: 25 MG, WEEKLY
     Route: 065
     Dates: start: 20220406

REACTIONS (5)
  - Medication error [Unknown]
  - Vomiting projectile [Not Recovered/Not Resolved]
  - Product quality issue [Unknown]
  - Malaise [Unknown]
  - Product complaint [Unknown]

NARRATIVE: CASE EVENT DATE: 20220406
